FAERS Safety Report 14749988 (Version 1)
Quarter: 2018Q2

REPORT INFORMATION
  Report Type: Report from Study
  Country: None (occurrence: IT)
  Receive Date: 20180412
  Receipt Date: 20180412
  Transmission Date: 20180711
  Serious: Yes (Hospitalization)
  Sender: FDA-Public Use
  Company Number: IT-ABBVIE-18P-083-2316689-00

PATIENT
  Age: 18 Year
  Sex: Male

DRUGS (3)
  1. EUTIROX [Concomitant]
     Active Substance: LEVOTHYROXINE SODIUM
     Indication: PRODUCT USED FOR UNKNOWN INDICATION
  2. DEPAKINE CHRONO [Suspect]
     Active Substance: VALPROATE SODIUM
     Indication: BORDERLINE PERSONALITY DISORDER
     Dosage: EXTENDED RELEASE
     Route: 048
     Dates: start: 20180326, end: 20180326
  3. OLANZAPINE. [Suspect]
     Active Substance: OLANZAPINE
     Indication: MANIA
     Route: 048
     Dates: start: 20180326, end: 20180326

REACTIONS (3)
  - Somnolence [Unknown]
  - Drug abuse [Unknown]
  - Pain in extremity [Unknown]

NARRATIVE: CASE EVENT DATE: 20180327
